FAERS Safety Report 6503722-1 (Version None)
Quarter: 2009Q4

REPORT INFORMATION
  Report Type: 
  Country: None (occurrence: None)
  Receive Date: 20091217
  Receipt Date: 20091214
  Transmission Date: 20100525
  Serious: Yes (Death, Other)
  Sender: FDA-Public Use
  Company Number: PHEH2009US17373

PATIENT
  Sex: Female

DRUGS (6)
  1. FEMARA [Suspect]
     Dosage: 2.5 MG, QD
     Route: 048
     Dates: end: 20090827
  2. COUMADIN [Concomitant]
  3. LEXAPRO [Concomitant]
  4. FASLODEX [Concomitant]
     Dosage: 500 MG, UNK
  5. ATENOLOL [Concomitant]
  6. TYLENOL (CAPLET) [Concomitant]

REACTIONS (5)
  - DISEASE PROGRESSION [None]
  - DYSPNOEA EXERTIONAL [None]
  - HYPOXIA [None]
  - ONCOLOGIC COMPLICATION [None]
  - PLEURAL FIBROSIS [None]
